FAERS Safety Report 4941354-7 (Version None)
Quarter: 2006Q1

REPORT INFORMATION
  Report Type: 
  Country: None (occurrence: None)
  Receive Date: 20060313
  Receipt Date: 20060213
  Transmission Date: 20060701
  Serious: Yes (Death, Hospitalization)
  Sender: FDA-Public Use
  Company Number: US-MERCK-0602USA04043

PATIENT
  Age: 64 Year
  Sex: Male
  Weight: 82 kg

DRUGS (2)
  1. VIOXX [Suspect]
     Indication: ARTHRALGIA
     Route: 048
     Dates: start: 20010827, end: 20030326
  2. VIOXX [Suspect]
     Route: 048
     Dates: start: 20010827, end: 20030326

REACTIONS (7)
  - COLONIC POLYP [None]
  - DEATH [None]
  - DIVERTICULUM [None]
  - DYSPEPSIA [None]
  - HAEMORRHOIDS [None]
  - MYOCARDIAL INFARCTION [None]
  - SINUS DISORDER [None]
